FAERS Safety Report 4557716-6 (Version None)
Quarter: 2005Q1

REPORT INFORMATION
  Report Type: 
  Country: None (occurrence: None)
  Receive Date: 20050118
  Receipt Date: 20050104
  Transmission Date: 20050727
  Serious: Yes (Hospitalization)
  Sender: FDA-Public Use
  Company Number: 2004-FF-00399FF

PATIENT
  Age: 82 Year
  Sex: Male

DRUGS (13)
  1. ATROVENT [Suspect]
     Dosage: 60 MCG (20 MCG), IH
     Route: 055
     Dates: end: 20040603
  2. ACETAMINOPHEN [Concomitant]
  3. CALCIPARIN (HEPARIN CALCIUM) (LO) [Concomitant]
  4. LASILIX (FUROSEMIDE) (TA) [Concomitant]
  5. OFLOCET (OFLOXACIN) (LO) [Concomitant]
  6. MONO-TILDIEM (DILTIAZEM HYDROCHLORIDE) (KAR) [Concomitant]
  7. CORDARONE [Concomitant]
  8. LIPANTHYL [Concomitant]
  9. ANAFRANIL [Concomitant]
  10. OMEPRAZOLE [Concomitant]
  11. IMOVANE (ZOPICLONE) [Concomitant]
  12. ZAMODOL (TRAMADOL HYDROCHLORIDE) [Concomitant]
  13. BRICANYL [Concomitant]

REACTIONS (2)
  - LYMPHOMA [None]
  - THROMBOCYTOPENIA [None]
